FAERS Safety Report 6968907-9 (Version None)
Quarter: 2010Q3

REPORT INFORMATION
  Report Type: 
  Country: None (occurrence: None)
  Receive Date: 20100903
  Receipt Date: 20100903
  Transmission Date: 20110219
  Serious: Yes (Hospitalization)
  Sender: FDA-Public Use
  Company Number: None

PATIENT
  Sex: Female
  Weight: 71.5 kg

DRUGS (8)
  1. CYCLOPHOSPHAMIDE [Suspect]
     Dosage: 1870 MG
  2. CYTARABINE [Suspect]
     Dosage: 1120 MG
  3. DEXAMETHASONE [Suspect]
     Dosage: 280 MG
  4. DOXORUBICIN HYDROCHLORIDE [Suspect]
     Dosage: 141 MG
  5. METHOTREXATE [Suspect]
     Dosage: 45 MG
  6. PEG-L- ASPARAGINASE (K -H) [Suspect]
     Dosage: 9350 IU
  7. THIOGUANINE [Suspect]
     Dosage: 1520 MG
  8. VINCRISTINE SULFATE [Suspect]
     Dosage: 10 MG

REACTIONS (5)
  - FEBRILE NEUTROPENIA [None]
  - HAEMOGLOBIN DECREASED [None]
  - PLATELET COUNT DECREASED [None]
  - PULMONARY MYCOSIS [None]
  - WHITE BLOOD CELL COUNT DECREASED [None]
